FAERS Safety Report 14965651 (Version 3)
Quarter: 2018Q3

REPORT INFORMATION
  Report Type: Spontaneous
  Country: PT (occurrence: PT)
  Receive Date: 20180602
  Receipt Date: 20180828
  Transmission Date: 20181010
  Serious: Yes (Hospitalization, Other)
  Sender: FDA-Public Use
  Company Number: PT-AUROBINDO-AUR-APL-2018-029586

PATIENT

DRUGS (24)
  1. ANASTROZOLE FILM?COATED TABLET [Suspect]
     Active Substance: ANASTROZOLE
     Indication: PRODUCT USED FOR UNKNOWN INDICATION
     Dosage: 1 MG  ID, 6 WEEKS CYCLE BEFORE THE COMPETITION ()
     Route: 048
  2. TESTOSTERONE. [Suspect]
     Active Substance: TESTOSTERONE
     Indication: PRODUCT USED FOR UNKNOWN INDICATION
     Dosage: 1200MG/WK, 6 WEEKS CYCLE BEFORE THE COMPETITION ()
     Route: 065
  3. CABERGOLINE. [Suspect]
     Active Substance: CABERGOLINE
     Indication: PRODUCT USED FOR UNKNOWN INDICATION
     Dosage: 0.25 MG EVERY OTHER DAY, 6 WEEKS CYCLE BEFORE THE COMPETITION ()
     Route: 065
  4. FLUOXYMESTERONE [Suspect]
     Active Substance: FLUOXYMESTERONE
     Dosage: 75 MILLIGRAM DAILY;
     Route: 065
  5. TESTOSTERONE ENANTHATE. [Suspect]
     Active Substance: TESTOSTERONE ENANTHATE
     Indication: PRODUCT USED FOR UNKNOWN INDICATION
     Dosage: 250 MG ID, 6 WEEKS CYCLE BEFORE THE COMPETITION ()
     Route: 065
  6. CLENBUTEROL [Suspect]
     Active Substance: CLENBUTEROL
     Indication: PRODUCT USED FOR UNKNOWN INDICATION
     Dosage: TID, 6 WEEKS CYCLE BEFORE THE COMPETITION ()
     Route: 065
  7. MESTEROLONE [Suspect]
     Active Substance: MESTEROLONE
     Indication: PRODUCT USED FOR UNKNOWN INDICATION
     Dosage: 25 MG 4?6ID, 6 WEEKS CYCLE BEFORE THE COMPETITION ()
     Route: 065
  8. MULTIVITAMINS                      /00116001/ [Suspect]
     Active Substance: VITAMINS
     Indication: PRODUCT USED FOR UNKNOWN INDICATION
     Dosage: 6 WEEKS CYCLE BEFORE THE COMPETITION ()
     Route: 065
  9. ALTIZIDE [Suspect]
     Active Substance: ALTHIAZIDE
     Dosage: ON THE DAY OF COMPETITION ()
     Route: 065
  10. STANOZOLOL [Suspect]
     Active Substance: STANOZOLOL
     Indication: PRODUCT USED FOR UNKNOWN INDICATION
     Dosage: 40 MG ID, 6 WEEKS CYCLE BEFORE THE COMPETITION ()
     Route: 065
  11. LIOTHYRONINE [Suspect]
     Active Substance: LIOTHYRONINE
     Indication: PRODUCT USED FOR UNKNOWN INDICATION
     Dosage: 25 MCG BID, 6 WEEKS CYCLE BEFORE THE COMPETITION ()
     Route: 065
  12. DROSTANOLONE PROPIONATE [Suspect]
     Active Substance: DROMOSTANOLONE PROPIONATE
     Indication: PRODUCT USED FOR UNKNOWN INDICATION
     Dosage: 100 MG EVERY OTHER DAY, 6 WEEKS CYCLE BEFORE THE COMPETITION ()
     Route: 065
  13. SPIRONOLACTONE. [Suspect]
     Active Substance: SPIRONOLACTONE
     Indication: PRODUCT USED FOR UNKNOWN INDICATION
     Dosage: ON THE DAY OF COMPETITION ()
     Route: 065
  14. STANOZOLOL [Suspect]
     Active Substance: STANOZOLOL
     Dosage: 40 MG ID, 6 WEEKS CYCLE BEFORE THE COMPETITION ()
  15. STANOZOLOL [Suspect]
     Active Substance: STANOZOLOL
     Dosage: 40 MILLIGRAM DAILY;
     Route: 065
  16. ALTIZIDE [Suspect]
     Active Substance: ALTHIAZIDE
     Indication: PRODUCT USED FOR UNKNOWN INDICATION
     Dosage: UNK
     Route: 065
  17. TESTOSTERONE ENANTHATE. [Suspect]
     Active Substance: TESTOSTERONE ENANTHATE
     Dosage: 250 MILLIGRAM DAILY;
     Route: 065
  18. LEVOTHYROXINE. [Suspect]
     Active Substance: LEVOTHYROXINE
     Dosage: 100 MICROGRAM DAILY;
     Route: 065
  19. TRENBOLONE [Suspect]
     Active Substance: TRENBOLONE
     Indication: PRODUCT USED FOR UNKNOWN INDICATION
     Dosage: 100 MG EVERY OTHER DAY, 6 WEEKS CYCLE BEFORE THE COMPETITION ()
     Route: 065
  20. TRENBOLONE [Suspect]
     Active Substance: TRENBOLONE
     Dosage: 100 MG ALTERNATE DAYS
     Route: 065
  21. TESTOSTERONE CYPIONATE. [Suspect]
     Active Substance: TESTOSTERONE CYPIONATE
     Indication: PRODUCT USED FOR UNKNOWN INDICATION
     Dosage: 500 MG/WK 6 WEEKS CYCLE BEFORE THE COMPETITION ()
     Route: 065
  22. SUSTANON                           /01129501/ [Suspect]
     Active Substance: TESTOSTERONE
     Indication: PRODUCT USED FOR UNKNOWN INDICATION
     Dosage: 250 MG TWICE WEEKLY, 6 WEEKS CYCLE BEFORE THE COMPETITION ()
     Route: 065
  23. LEVOTHYROXINE. [Suspect]
     Active Substance: LEVOTHYROXINE
     Indication: PRODUCT USED FOR UNKNOWN INDICATION
     Dosage: 100 MCG ID, 6 WEEKS CYCLE BEFORE THE COMPETITION ()
     Route: 065
  24. FLUOXYMESTERONE [Suspect]
     Active Substance: FLUOXYMESTERONE
     Indication: PRODUCT USED FOR UNKNOWN INDICATION
     Dosage: 75 MG ID, 6 WEEKS CYCLE BEFORE THE COMPETITION ()
     Route: 065

REACTIONS (8)
  - Product use issue [Unknown]
  - Diabetes mellitus [Recovered/Resolved]
  - Autoimmune thyroiditis [Recovered/Resolved]
  - Product use in unapproved indication [Unknown]
  - Off label use [Unknown]
  - Secondary hypogonadism [Recovered/Resolved]
  - Drug abuse [Unknown]
  - Haematocrit increased [Unknown]
